FAERS Safety Report 23682906 (Version 2)
Quarter: 2024Q2

REPORT INFORMATION
  Report Type: Spontaneous
  Country: US (occurrence: US)
  Receive Date: 20240328
  Receipt Date: 20240611
  Transmission Date: 20240716
  Serious: Yes (Hospitalization, Other)
  Sender: FDA-Public Use
  Company Number: US-SA-SAC20240322001187

PATIENT
  Age: 23 Year
  Sex: Female
  Weight: 57.1 kg

DRUGS (37)
  1. THYMOGLOBULIN [Suspect]
     Active Substance: LAPINE T-LYMPHOCYTE IMMUNE GLOBULIN
     Dosage: 1 MG/KG, ONCE
     Route: 065
     Dates: start: 20231229
  2. THYMOGLOBULIN [Suspect]
     Active Substance: LAPINE T-LYMPHOCYTE IMMUNE GLOBULIN
     Dosage: 1 MG/KG, QD
     Dates: start: 20231229
  3. THYMOGLOBULIN [Suspect]
     Active Substance: LAPINE T-LYMPHOCYTE IMMUNE GLOBULIN
     Dosage: 1 MG/KG, TOTAL
     Dates: start: 20240101
  4. ACETAMINOPHEN [Concomitant]
     Active Substance: ACETAMINOPHEN
     Dosage: 1000 MG, Q6H
  5. ACETAMINOPHEN [Concomitant]
     Active Substance: ACETAMINOPHEN
     Dosage: 650 MG, QID
     Dates: start: 20231229
  6. ACETAMINOPHEN [Concomitant]
     Active Substance: ACETAMINOPHEN
     Dosage: 650 MG, QD PRN
  7. DIPHENHYDRAMINE [Concomitant]
     Active Substance: DIPHENHYDRAMINE
     Dosage: 25 MG, ONCE
     Dates: start: 20231229
  8. DIPHENHYDRAMINE [Concomitant]
     Active Substance: DIPHENHYDRAMINE
     Dosage: 25 MG, TOTAL
     Dates: start: 20240101
  9. METHYLPREDNISOLONE SODIUM SUCCINATE [Concomitant]
     Active Substance: METHYLPREDNISOLONE SODIUM SUCCINATE
     Dosage: 500 MG, ONCE
     Dates: start: 20231229
  10. METHYLPREDNISOLONE SODIUM SUCCINATE [Concomitant]
     Active Substance: METHYLPREDNISOLONE SODIUM SUCCINATE
     Dates: start: 20231229
  11. METHYLPREDNISOLONE SODIUM SUCCINATE [Concomitant]
     Active Substance: METHYLPREDNISOLONE SODIUM SUCCINATE
     Dosage: 125 MG, ONCE
     Dates: start: 20231229
  12. METHYLPREDNISOLONE SODIUM SUCCINATE [Concomitant]
     Active Substance: METHYLPREDNISOLONE SODIUM SUCCINATE
     Dates: start: 20240101
  13. PREDNISONE [Concomitant]
     Active Substance: PREDNISONE
     Dosage: 50 MG, QD
     Dates: start: 20231230
  14. PREDNISONE [Concomitant]
     Active Substance: PREDNISONE
     Dates: start: 20231231
  15. PREDNISONE [Concomitant]
     Active Substance: PREDNISONE
     Dates: start: 20240101
  16. CABERGOLINE [Concomitant]
     Active Substance: CABERGOLINE
     Dosage: 0.25 MG, Q WEDNESDAY
  17. CARVEDILOL [Concomitant]
     Active Substance: CARVEDILOL
  18. CLONIDINE [Concomitant]
     Active Substance: CLONIDINE
     Dosage: 1 PATCH, Q7 DAYS
     Dates: start: 20231230
  19. CLOTRIMAZOLE [Concomitant]
     Active Substance: CLOTRIMAZOLE
  20. FAMOTIDINE [Concomitant]
     Active Substance: FAMOTIDINE
  21. HEPARIN [Concomitant]
     Active Substance: HEPARIN SODIUM
  22. HYDRALAZINE [Concomitant]
     Active Substance: HYDRALAZINE HYDROCHLORIDE
  23. LOSARTAN [Concomitant]
     Active Substance: LOSARTAN
     Dosage: 100 MG, Q PM
  24. MYCOPHENOLATE SODIUM [Concomitant]
     Active Substance: MYCOPHENOLATE SODIUM
  25. POLYETHYLENE GLYCOL 3350 [Concomitant]
     Active Substance: POLYETHYLENE GLYCOL 3350
  26. JW 5% DEXTROSE + 0.45% SODIUM CHLORIDE [Concomitant]
     Dosage: 10 ML/HR, CONTINUOUS
  27. SULFAMETHOXAZOLE\TRIMETHOPRIM [Concomitant]
     Active Substance: SULFAMETHOXAZOLE\TRIMETHOPRIM
  28. VALGANCICLOVIR [Concomitant]
     Active Substance: VALGANCICLOVIR
     Dates: start: 20240101
  29. HYDROMORPHONE [Concomitant]
     Active Substance: HYDROMORPHONE
     Dosage: 1 MG/ML PCA
  30. HYDROMORPHONE [Concomitant]
     Active Substance: HYDROMORPHONE
     Dosage: 0.2 MG, Q5 MIN PRN
  31. NALOXONE [Concomitant]
     Active Substance: NALOXONE
     Dosage: 0.08MG MG, Q2 MIN PRN
  32. ONDANSETRON [Concomitant]
     Active Substance: ONDANSETRON
     Dosage: 4-8 MG, Q8H PRN
  33. ONDANSETRON [Concomitant]
     Active Substance: ONDANSETRON
     Dosage: 4 MG, Q8H
  34. SIMETHICONE (DIMETHICONE) [Concomitant]
     Active Substance: DIMETHICONE
     Dosage: 80 MG, QID PRN
  35. CALCIUM CITRATE\VITAMIN D [Concomitant]
     Active Substance: CALCIUM CITRATE\VITAMIN D
  36. PLASMA-LYTE A [Concomitant]
     Active Substance: MAGNESIUM CHLORIDE\POTASSIUM CHLORIDE\SODIUM ACETATE\SODIUM CHLORIDE\SODIUM GLUCONATE
     Dosage: 100 ML/HR, CONTINUOUS
  37. SODIUM CHLORIDE [Concomitant]
     Active Substance: SODIUM CHLORIDE
     Dosage: 0-150 ML/HR, CONTINUOUS, LAST RATE: 150 ML/HR

REACTIONS (3)
  - Haemoglobin decreased [Unknown]
  - Thrombocytopenia [Recovered/Resolved]
  - Lymphocyte count decreased [Unknown]
